FAERS Safety Report 9869908 (Version 3)
Quarter: 2014Q1

REPORT INFORMATION
  Report Type: Spontaneous
  Country: GB (occurrence: None)
  Receive Date: 20140131
  Receipt Date: 20140218
  Transmission Date: 20141002
  Serious: Yes (Other)
  Sender: FDA-Public Use
  Company Number: AUR-APL-2014-00753

PATIENT
  Age: 15 Year
  Sex: Female
  Weight: 68 kg

DRUGS (6)
  1. QUETIAPINE [Suspect]
     Indication: DEPRESSION
     Route: 048
     Dates: start: 20131119, end: 20140110
  2. SERTRALINE [Suspect]
     Indication: DEPRESSION
     Route: 048
     Dates: start: 20131119, end: 20140110
  3. ADAPALENE (ADAPALENE) CREAM, 0.1% [Concomitant]
  4. DOXYCYCLINE (DOXYCYCLINE) [Concomitant]
  5. OLANZAPIN (OLANZAPINE) [Concomitant]
  6. PROMETHAZINE (PROMETHAZINE) [Concomitant]

REACTIONS (11)
  - Abdominal pain [None]
  - Urinary incontinence [None]
  - Nausea [None]
  - Vomiting [None]
  - Paraesthesia [None]
  - Pallor [None]
  - Slow response to stimuli [None]
  - Dysarthria [None]
  - Dizziness [None]
  - Hyponatraemia [None]
  - Malaise [None]
